FAERS Safety Report 5478784-3 (Version None)
Quarter: 2007Q4

REPORT INFORMATION
  Report Type: 
  Country: None (occurrence: None)
  Receive Date: 20071002
  Receipt Date: 20070917
  Transmission Date: 20080405
  Serious: Yes (Other)
  Sender: FDA-Public Use
  Company Number: 2007US002226

PATIENT
  Sex: Male

DRUGS (2)
  1. PROTOPIC [Suspect]
     Indication: PSORIASIS
     Dosage: 0.1%, UID/QD, TOPICAL
     Route: 061
  2. TOPICAL STEROID [Concomitant]

REACTIONS (1)
  - ANAL CANCER STAGE 0 [None]
